FAERS Safety Report 4413514-5 (Version None)
Quarter: 2004Q3

REPORT INFORMATION
  Report Type: 
  Country: None (occurrence: None)
  Receive Date: 20040802
  Receipt Date: 20040723
  Transmission Date: 20050211
  Serious: No
  Sender: FDA-Public Use
  Company Number: JP-MERCK-0407USA02272

PATIENT

DRUGS (2)
  1. [THERAPY UNSPECIFIED] [Concomitant]
     Route: 065
  2. COZAAR [Suspect]
     Route: 048

REACTIONS (1)
  - PHOTOSENSITIVITY REACTION [None]
